FAERS Safety Report 7850746-8 (Version None)
Quarter: 2011Q4

REPORT INFORMATION
  Report Type: 
  Country: None (occurrence: None)
  Receive Date: 20111024
  Receipt Date: 20111013
  Transmission Date: 20120403
  Serious: Yes (Other)
  Sender: FDA-Public Use
  Company Number: 7088858

PATIENT
  Age: 54 Year
  Sex: Male

DRUGS (11)
  1. CANDESARTAN CILEXETIL [Suspect]
  2. ASPIRIN [Suspect]
     Indication: PRODUCT USED FOR UNKNOWN INDICATION
  3. METFORMIN HCL [Suspect]
     Indication: PRODUCT USED FOR UNKNOWN INDICATION
     Dosage: (2 GM)
  4. ROSUVASTATIN [Suspect]
  5. LEVOTHYROXINE SODIUM [Suspect]
     Indication: PRODUCT USED FOR UNKNOWN INDICATION
  6. PREGABALIN [Suspect]
  7. GLICLAZIDE (GLICLAZIDE) (GLICLAZIDE) [Suspect]
     Indication: PRODUCT USED FOR UNKNOWN INDICATION
     Dosage: (320 MG)
  8. QUININE SULFATE [Suspect]
     Indication: PRODUCT USED FOR UNKNOWN INDICATION
  9. EXENATIDE (EXENATIDE) (EXENATIDE) [Suspect]
     Dosage: 20 MG (10 MCG,2 IN 1 D) ; 10 MCG (5 MCG,2 IN 1 D)
  10. AMITRIPTYLINE HCL [Suspect]
     Indication: PRODUCT USED FOR UNKNOWN INDICATION
  11. INSULIN GLARGINE (INSULIN GLARGINE) (INSULIN GLARGINE) [Suspect]
     Indication: PRODUCT USED FOR UNKNOWN INDICATION

REACTIONS (4)
  - GASTROINTESTINAL DISORDER [None]
  - RENAL FAILURE ACUTE [None]
  - NAUSEA [None]
  - BODY MASS INDEX DECREASED [None]
